FAERS Safety Report 6602975-9 (Version None)
Quarter: 2010Q1

REPORT INFORMATION
  Report Type: 
  Country: None (occurrence: None)
  Receive Date: 20100226
  Receipt Date: 20100218
  Transmission Date: 20100710
  Serious: Yes (Hospitalization, Other)
  Sender: FDA-Public Use
  Company Number: IT-JNJFOC-20090906941

PATIENT
  Sex: Male

DRUGS (4)
  1. RISPERDAL [Suspect]
     Indication: SELF INJURIOUS BEHAVIOUR
     Route: 065
  2. GABAPENTIN [Suspect]
     Indication: SELF INJURIOUS BEHAVIOUR
  3. NOZINAN [Suspect]
     Indication: SELF INJURIOUS BEHAVIOUR
  4. DIAZEPAM [Suspect]
     Indication: DEPRESSION
     Route: 048

REACTIONS (2)
  - MULTIPLE DRUG OVERDOSE INTENTIONAL [None]
  - SELF INJURIOUS BEHAVIOUR [None]
